FAERS Safety Report 5868561-3 (Version None)
Quarter: 2008Q3

REPORT INFORMATION
  Report Type: 
  Country: None (occurrence: None)
  Receive Date: 20080902
  Receipt Date: 20080902
  Transmission Date: 20090109
  Serious: Yes (Hospitalization)
  Sender: FDA-Public Use
  Company Number: None

PATIENT
  Age: 53 Year
  Sex: Male
  Weight: 70.7611 kg

DRUGS (1)
  1. BACTRIM DS [Suspect]
     Indication: ABSCESS JAW
     Dosage: 1 TABLET  2 X A DAY PO
     Route: 048
     Dates: start: 20080813, end: 20080826

REACTIONS (7)
  - ARTHRALGIA [None]
  - DEPRESSION [None]
  - DYSGEUSIA [None]
  - EMOTIONAL DISTRESS [None]
  - FLUID RETENTION [None]
  - GASTRITIS [None]
  - INFLUENZA LIKE ILLNESS [None]
